FAERS Safety Report 9890382 (Version 1)
Quarter: 2014Q1

REPORT INFORMATION
  Report Type: Spontaneous
  Country: US (occurrence: None)
  Receive Date: 20140210
  Receipt Date: 20140210
  Transmission Date: 20141002
  Serious: Yes (Death)
  Sender: FDA-Public Use
  Company Number: None

PATIENT
  Age: 67 Year
  Sex: Male
  Weight: 68.6 kg

DRUGS (9)
  1. ABRAXANE [Suspect]
     Indication: HEAD AND NECK CANCER
  2. BENEFIBER (NUTRISOURCE FIBER) [Concomitant]
  3. CELECOXIB (CELEBREX) [Concomitant]
  4. NEXIUM [Concomitant]
  5. GUAIFENESIN (ROBITUSSIN) [Concomitant]
  6. HYDROCODONE-ACETAMINOPHEN (LORTAB LACTOSE-FREE FOOD/FIBER (ISOSOURCE 1.5 CAL ORP.L) [Concomitant]
  7. MULTIVITAMIN/IRON/FOLIC ACID (MULTI COMPLETE WITH IRON ORAL) [Concomitant]
  8. NAPROXEN SODIUM (ALEVE ORAL) [Concomitant]
  9. PSEUDOEPHEDRINE (SUDAFED) [Concomitant]

REACTIONS (2)
  - Pneumonia [None]
  - Respiratory failure [None]
